FAERS Safety Report 5605754-4 (Version None)
Quarter: 2008Q1

REPORT INFORMATION
  Report Type: 
  Country: None (occurrence: None)
  Receive Date: 20080123
  Receipt Date: 20080108
  Transmission Date: 20080703
  Serious: Yes (Other)
  Sender: FDA-Public Use
  Company Number: WAES 0708FRA00054

PATIENT
  Age: 36 Year
  Sex: Male

DRUGS (8)
  1. TAB RALTEGRAVIR POTASSIUM 400 MG [Suspect]
     Indication: HIV INFECTION
     Dosage: 400 MG/BID/PO; 800 MG/BID/PO; 400 MG/BID/PO
     Route: 048
     Dates: start: 20070809, end: 20070815
  2. TAB RALTEGRAVIR POTASSIUM 400 MG [Suspect]
     Indication: HIV INFECTION
     Dosage: 400 MG/BID/PO; 800 MG/BID/PO; 400 MG/BID/PO
     Route: 048
     Dates: start: 20070816, end: 20070826
  3. TAB RALTEGRAVIR POTASSIUM 400 MG [Suspect]
     Indication: HIV INFECTION
     Dosage: 400 MG/BID/PO; 800 MG/BID/PO; 400 MG/BID/PO
     Route: 048
     Dates: start: 20070827
  4. TAB DARUNAVIR 300 MG [Suspect]
     Indication: HIV INFECTION
     Dosage: 600 MG/BID/PO;
     Route: 048
     Dates: start: 20070809
  5. CAP RITONAVIR 100 MG [Suspect]
     Indication: HIV INFECTION
     Dosage: 100 MG/BID/PO
     Route: 048
     Dates: start: 20070809
  6. TAB ETRAVIRINE 100 MG [Suspect]
     Indication: HIV INFECTION
     Dosage: 200 MG/BID/PO
     Route: 048
     Dates: start: 20070809
  7. LAMIVUDINE [Concomitant]
  8. SULFAMETHOXAZOLE (+) TRIMETHOPRI [Concomitant]

REACTIONS (5)
  - ACCIDENTAL OVERDOSE [None]
  - ALANINE AMINOTRANSFERASE INCREASED [None]
  - ASPARTATE AMINOTRANSFERASE INCREASED [None]
  - CONDITION AGGRAVATED [None]
  - GAMMA-GLUTAMYLTRANSFERASE INCREASED [None]
